FAERS Safety Report 7679710-9 (Version None)
Quarter: 2011Q3

REPORT INFORMATION
  Report Type: 
  Country: None (occurrence: None)
  Receive Date: 20110812
  Receipt Date: 20110802
  Transmission Date: 20111222
  Serious: Yes (Other)
  Sender: FDA-Public Use
  Company Number: JP-EISAI INC-E3810-04848-SPO-JP

PATIENT
  Age: 68 Year
  Sex: Female

DRUGS (8)
  1. ZOLPIDEM [Concomitant]
     Route: 048
  2. LIVALO [Concomitant]
     Route: 048
  3. ALLOPURINOL [Concomitant]
     Route: 048
  4. ASPIRIN [Concomitant]
     Route: 048
  5. RABEPRAZOLE SODIUM [Suspect]
     Indication: GASTROOESOPHAGEAL REFLUX DISEASE
     Route: 048
     Dates: start: 20110427, end: 20110524
  6. RABEPRAZOLE SODIUM [Suspect]
     Route: 048
     Dates: start: 20110525, end: 20110630
  7. LASIX [Concomitant]
     Route: 048
  8. AMLODIPINE [Concomitant]
     Route: 048

REACTIONS (1)
  - COLITIS MICROSCOPIC [None]
